FAERS Safety Report 9422661 (Version 1)
Quarter: 2013Q3

REPORT INFORMATION
  Report Type: Spontaneous
  Country: PE (occurrence: PE)
  Receive Date: 20130726
  Receipt Date: 20130726
  Transmission Date: 20140515
  Serious: Yes (Hospitalization)
  Sender: FDA-Public Use
  Company Number: PE-PFIZER INC-2013203943

PATIENT
  Age: 77 Year
  Sex: Female

DRUGS (1)
  1. NORVASTOR [Suspect]
     Indication: CARDIOVASCULAR DISORDER
     Dosage: UNK
     Route: 048

REACTIONS (1)
  - Large intestine polyp [Recovered/Resolved]
